FAERS Safety Report 5027343-5 (Version None)
Quarter: 2006Q2

REPORT INFORMATION
  Report Type: 
  Country: None (occurrence: None)
  Receive Date: 20060612
  Receipt Date: 20060601
  Transmission Date: 20061013
  Serious: Yes (Other)
  Sender: FDA-Public Use
  Company Number: 2006070835

PATIENT
  Age: 34 Year
  Sex: Male
  Weight: 86.1834 kg

DRUGS (2)
  1. BENADRYL [Suspect]
     Indication: SINUS CONGESTION
     Dosage: 2 TABS TWICE, ORAL
     Route: 048
     Dates: start: 20060601, end: 20060601
  2. ALLANTOIN/COLLOIDAL OATMEAL/GLYCERIN (ALLANTOIN, AVENA, GLYCEROL) [Suspect]
     Indication: RASH
     Dosage: TOPICAL
     Route: 061
     Dates: start: 20060601

REACTIONS (4)
  - ERYTHEMA [None]
  - FEELING HOT [None]
  - PRURITUS [None]
  - RASH [None]
